FAERS Safety Report 15488633 (Version 2)
Quarter: 2018Q4

REPORT INFORMATION
  Report Type: Spontaneous
  Country: BR (occurrence: BR)
  Receive Date: 20181011
  Receipt Date: 20181012
  Transmission Date: 20190205
  Serious: Yes (Hospitalization, Other)
  Sender: FDA-Public Use
  Company Number: BR-009507513-1810BRA002517

PATIENT
  Sex: Male
  Weight: 88 kg

DRUGS (6)
  1. NASONEX [Suspect]
     Active Substance: MOMETASONE FUROATE
     Dosage: 120 ATMOSPHERE (ATM), 2 SPRAYS IN EACH NOSTRIL DAILY
     Route: 045
     Dates: start: 201607
  2. SIMVASTATIN. [Suspect]
     Active Substance: SIMVASTATIN
     Dosage: UNK
     Dates: start: 2016
  3. LOSARTAN POTASSIUM. [Suspect]
     Active Substance: LOSARTAN POTASSIUM
     Dosage: UNK
     Dates: start: 2016
  4. DIOVAN HCT [Concomitant]
     Active Substance: HYDROCHLOROTHIAZIDE\VALSARTAN
     Dosage: UNK
  5. VASOGARD [Concomitant]
     Active Substance: CILOSTAZOL
  6. ALENIA [Concomitant]
     Active Substance: BUDESONIDE\FORMOTEROL FUMARATE
     Dosage: UNK

REACTIONS (3)
  - Cataract [Unknown]
  - Stress [Unknown]
  - Drug ineffective [Unknown]

NARRATIVE: CASE EVENT DATE: 201804
